FAERS Safety Report 6701558-X (Version None)
Quarter: 2010Q2

REPORT INFORMATION
  Report Type: 
  Country: None (occurrence: None)
  Receive Date: 20100429
  Receipt Date: 20100426
  Transmission Date: 20101027
  Serious: Yes (Other)
  Sender: FDA-Public Use
  Company Number: US-JNJFOC-20091200535

PATIENT
  Sex: Female
  Weight: 72.12 kg

DRUGS (10)
  1. NUCYNTA [Suspect]
     Indication: BACK PAIN
     Route: 048
  2. NUCYNTA [Suspect]
     Route: 048
  3. GABAPENTIN [Concomitant]
     Indication: RESTLESS LEGS SYNDROME
  4. DIPHENOXYLATE AND ATROPINE [Concomitant]
     Indication: COLITIS
  5. ASACOL [Concomitant]
     Indication: COLITIS
  6. DILTIAZEM HCL [Concomitant]
     Indication: BLOOD PRESSURE
  7. FORTEO [Concomitant]
     Indication: OSTEOPOROSIS
  8. CLONAZEPAM [Concomitant]
  9. CHOLESTYRAMINE [Concomitant]
     Indication: DIARRHOEA
  10. NITROGLYCERIN [Concomitant]
     Indication: ANGINA PECTORIS
     Route: 048

REACTIONS (2)
  - ABNORMAL DREAMS [None]
  - HALLUCINATION [None]
